FAERS Safety Report 5074040-6 (Version None)
Quarter: 2006Q3

REPORT INFORMATION
  Report Type: 
  Country: None (occurrence: None)
  Receive Date: 20060808
  Receipt Date: 20050701
  Transmission Date: 20061208
  Serious: No
  Sender: FDA-Public Use
  Company Number: US-AMGEN-KDL141461

PATIENT
  Sex: Female

DRUGS (16)
  1. PROCRIT [Suspect]
     Indication: ANAEMIA OF MALIGNANT DISEASE
     Dates: start: 20050630
  2. AVANDIA [Concomitant]
  3. AMARYL [Concomitant]
     Route: 048
  4. INDERAL [Concomitant]
  5. LOTREL [Concomitant]
  6. LIPITOR [Concomitant]
  7. NEXIUM [Concomitant]
  8. PENICILLIN [Concomitant]
  9. FUROSEMIDE [Concomitant]
  10. TRIAMTERENE [Concomitant]
  11. HEMOCYTE [Concomitant]
  12. ASPIRIN [Concomitant]
  13. CALCIUM GLUCONATE [Concomitant]
  14. VITAMINS [Concomitant]
  15. FUROSEMIDE [Concomitant]
  16. ARIMIDEX [Concomitant]

REACTIONS (1)
  - PRURITUS GENERALISED [None]
